FAERS Safety Report 6162457-8 (Version None)
Quarter: 2009Q2

REPORT INFORMATION
  Report Type: 
  Country: None (occurrence: None)
  Receive Date: 20090421
  Receipt Date: 20090407
  Transmission Date: 20091009
  Serious: Yes (Hospitalization, Other)
  Sender: FDA-Public Use
  Company Number: PHHY2009JP09031

PATIENT
  Sex: Female
  Weight: 47 kg

DRUGS (12)
  1. TERNELIN [Suspect]
     Indication: BACK PAIN
     Dosage: 2 MG, QD
     Route: 048
     Dates: start: 20090219, end: 20090226
  2. TERNELIN [Suspect]
     Dosage: 1 MG, BID
     Route: 048
     Dates: start: 20090309, end: 20090310
  3. DIOVAN [Suspect]
     Indication: HYPERTENSION
     Dosage: 80 MG, QD
     Route: 048
     Dates: start: 20051222
  4. FLUVOXAMINE MALEATE [Suspect]
     Indication: DEPRESSION
     Dosage: 25 MG, QD
     Route: 048
     Dates: start: 20050811
  5. NATRIX [Suspect]
     Indication: HYPERTENSION
     Dosage: 1 MG, QD
     Route: 048
     Dates: start: 20060209, end: 20090320
  6. LOXONIN [Suspect]
     Indication: BACK PAIN
     Dosage: 120 MG
     Route: 048
     Dates: start: 20090219
  7. LOXONIN [Suspect]
     Dosage: 120 MG
     Route: 048
     Dates: end: 20090316
  8. DIAZEPAM [Concomitant]
     Indication: INSOMNIA
     Dosage: 5 MG
     Route: 048
     Dates: start: 20050721
  9. MEVALOTIN [Concomitant]
     Indication: HYPERLIPIDAEMIA
     Dosage: 10 MG
     Route: 048
     Dates: start: 20081211
  10. MYSLEE [Concomitant]
     Indication: INSOMNIA
     Dosage: 10 MG
     Route: 048
     Dates: start: 20080403
  11. MUCOSTA [Concomitant]
     Indication: PROPHYLAXIS AGAINST GASTROINTESTINAL ULCER
     Dosage: 200 MG
     Route: 048
     Dates: start: 20090219
  12. MUCOSTA [Concomitant]
     Dosage: 200 MG
     Route: 048
     Dates: end: 20090219

REACTIONS (6)
  - ALTERED STATE OF CONSCIOUSNESS [None]
  - BACK PAIN [None]
  - BLOOD PRESSURE DECREASED [None]
  - BLOOD PRESSURE INCREASED [None]
  - SOMNOLENCE [None]
  - SPINAL COMPRESSION FRACTURE [None]
